FAERS Safety Report 8679472 (Version 2)
Quarter: 2013Q2

REPORT INFORMATION
  Report Type: Spontaneous
  Country: US (occurrence: US)
  Receive Date: 20120724
  Receipt Date: 20130516
  Transmission Date: 20140414
  Serious: Yes (Other)
  Sender: FDA-Public Use
  Company Number: US-GENZYME-LEUK-1000291

PATIENT
  Sex: Female

DRUGS (3)
  1. LEUKINE [Suspect]
     Indication: MALIGNANT MELANOMA
     Dosage: 500 MCG, UNK, (LIQUID FORM)
     Route: 065
  2. LEUKINE [Suspect]
     Dosage: 250 MCG, FOR 14 DAYS EACH MONTH (LIQUID FORM)
     Route: 065
     Dates: start: 200503
  3. LEUKINE [Suspect]
     Dosage: 250 MCG, UNK (POWDER FORM)
     Route: 065

REACTIONS (1)
  - Endometrial cancer [Unknown]
